FAERS Safety Report 24175698 (Version 1)
Quarter: 2024Q3

REPORT INFORMATION
  Report Type: Spontaneous
  Country: US (occurrence: US)
  Receive Date: 20240805
  Receipt Date: 20240805
  Transmission Date: 20241017
  Serious: Yes (Death, Hospitalization, Other)
  Sender: MERCK
  Company Number: US-009507513-2407USA015863

PATIENT
  Age: 87 Year
  Sex: Male

DRUGS (2)
  1. KEYTRUDA [Suspect]
     Active Substance: PEMBROLIZUMAB
     Indication: Transitional cell carcinoma
     Dosage: UNK UNK, CYCLICAL
     Dates: start: 2023, end: 2023
  2. KEYTRUDA [Suspect]
     Active Substance: PEMBROLIZUMAB
     Dosage: UNK UNK, CYCLICAL
     Dates: start: 20230804

REACTIONS (4)
  - Immune-mediated myasthenia gravis [Fatal]
  - Immune-mediated myositis [Fatal]
  - Toxic cardiomyopathy [Fatal]
  - Myocarditis [Fatal]

NARRATIVE: CASE EVENT DATE: 20230801
